FAERS Safety Report 5674007-0 (Version None)
Quarter: 2008Q1

REPORT INFORMATION
  Report Type: 
  Country: None (occurrence: None)
  Receive Date: 20080320
  Receipt Date: 20080310
  Transmission Date: 20080703
  Serious: Yes (Other)
  Sender: FDA-Public Use
  Company Number: DE-BAYER-200815039GPV

PATIENT
  Sex: Female

DRUGS (1)
  1. BETAFERON / INTERFERON BETA-1B, RECOMBINANT [Suspect]
     Indication: DRUG USE FOR UNKNOWN INDICATION

REACTIONS (2)
  - ABSCESS DRAINAGE [None]
  - INFLUENZA LIKE ILLNESS [None]
